FAERS Safety Report 5794735-6 (Version None)
Quarter: 2008Q2

REPORT INFORMATION
  Report Type: 
  Country: None (occurrence: None)
  Receive Date: 20080630
  Receipt Date: 20080617
  Transmission Date: 20081010
  Serious: Yes (Congenital Anomaly)
  Sender: FDA-Public Use
  Company Number: DE-AVENTIS-200711759DE

PATIENT
  Age: 32 Year
  Sex: Female

DRUGS (1)
  1. ARAVA [Suspect]
     Route: 065
     Dates: start: 20070101

REACTIONS (2)
  - BIOPSY CHORIONIC VILLOUS ABNORMAL [None]
  - TRANSMISSION OF DRUG VIA SEMEN [None]
